FAERS Safety Report 24245930 (Version 1)
Quarter: 2024Q3

REPORT INFORMATION
  Report Type: Spontaneous
  Country: US (occurrence: US)
  Receive Date: 20240824
  Receipt Date: 20240824
  Transmission Date: 20241017
  Serious: No
  Sender: AMGEN
  Company Number: US-AMGEN-USASP2024166253

PATIENT
  Age: 32 Year
  Sex: Female

DRUGS (3)
  1. AVSOLA [Suspect]
     Active Substance: INFLIXIMAB-AXXQ
     Indication: Coeliac disease
     Dosage: UNK UNK, Q8WK
     Route: 065
     Dates: start: 202402
  2. AVSOLA [Suspect]
     Active Substance: INFLIXIMAB-AXXQ
     Indication: Colitis microscopic
  3. AVSOLA [Suspect]
     Active Substance: INFLIXIMAB-AXXQ
     Indication: Colitis ulcerative

REACTIONS (2)
  - Hepatic enzyme increased [Not Recovered/Not Resolved]
  - Gluten sensitivity [Unknown]

NARRATIVE: CASE EVENT DATE: 20240301
